FAERS Safety Report 8561547-X (Version None)
Quarter: 2012Q3

REPORT INFORMATION
  Report Type: 
  Country: None (occurrence: None)
  Receive Date: 20120802
  Receipt Date: 20120723
  Transmission Date: 20120928
  Serious: No
  Sender: FDA-Public Use
  Company Number: US-ASTRAZENECA-2012SE41771

PATIENT
  Age: 62 Year
  Sex: Female

DRUGS (7)
  1. NEXIUM [Suspect]
     Route: 048
  2. VITAMIN D [Concomitant]
  3. AVISTA [Concomitant]
  4. FLEXERIL [Concomitant]
  5. CRESTOR [Suspect]
     Route: 048
  6. TOPROL-XL [Suspect]
     Route: 048
  7. CYMBALTA [Concomitant]

REACTIONS (5)
  - BARRETT'S OESOPHAGUS [None]
  - CHEST DISCOMFORT [None]
  - DRUG DOSE OMISSION [None]
  - DYSPEPSIA [None]
  - ABDOMINAL DISCOMFORT [None]
